FAERS Safety Report 25804114 (Version 1)
Quarter: 2025Q3

REPORT INFORMATION
  Report Type: Spontaneous
  Country: JP (occurrence: JP)
  Receive Date: 20250915
  Receipt Date: 20250915
  Transmission Date: 20251021
  Serious: Yes (Life-Threatening, Hospitalization, Other)
  Sender: RECORDATI
  Company Number: JP-RECORDATI RARE DISEASE INC.-2025006376

PATIENT
  Age: 33 Year
  Sex: Female

DRUGS (10)
  1. DACTINOMYCIN [Suspect]
     Active Substance: DACTINOMYCIN
     Indication: Choriocarcinoma
  2. DACTINOMYCIN [Suspect]
     Active Substance: DACTINOMYCIN
     Indication: Off label use
  3. ETOPOSIDE [Suspect]
     Active Substance: ETOPOSIDE
     Indication: Choriocarcinoma
  4. ETOPOSIDE [Suspect]
     Active Substance: ETOPOSIDE
  5. METHOTREXATE [Suspect]
     Active Substance: METHOTREXATE
     Indication: Choriocarcinoma
  6. METHOTREXATE [Suspect]
     Active Substance: METHOTREXATE
  7. CYCLOPHOSPHAMIDE [Suspect]
     Active Substance: CYCLOPHOSPHAMIDE
     Indication: Choriocarcinoma
  8. CYCLOPHOSPHAMIDE [Suspect]
     Active Substance: CYCLOPHOSPHAMIDE
  9. VINCRISTINE [Suspect]
     Active Substance: VINCRISTINE
     Indication: Choriocarcinoma
  10. VINCRISTINE [Suspect]
     Active Substance: VINCRISTINE

REACTIONS (6)
  - Liver carcinoma ruptured [Recovered/Resolved]
  - Shock haemorrhagic [Recovered/Resolved]
  - Haemorrhagic ascites [Recovered/Resolved]
  - Anaemia [Recovered/Resolved]
  - Myelosuppression [Unknown]
  - Off label use [Recovered/Resolved]
